FAERS Safety Report 23561644 (Version 3)
Quarter: 2024Q2

REPORT INFORMATION
  Report Type: Spontaneous
  Country: US (occurrence: US)
  Receive Date: 20240225
  Receipt Date: 20240520
  Transmission Date: 20240716
  Serious: No
  Sender: FDA-Public Use
  Company Number: US-GLAXOSMITHKLINE-US2024AMR022320

PATIENT
  Sex: Female
  Weight: 74.376 kg

DRUGS (8)
  1. ZEJULA [Suspect]
     Active Substance: NIRAPARIB
     Indication: Ovarian cancer
     Dosage: 200 MG, QD
     Route: 048
     Dates: start: 20240108, end: 20240201
  2. ZEJULA [Suspect]
     Active Substance: NIRAPARIB
     Dosage: 100 MG, QD
     Route: 048
     Dates: start: 20240201
  3. FAMOTIDINE [Concomitant]
     Active Substance: FAMOTIDINE
     Indication: Product used for unknown indication
     Dosage: UNK
  4. LISINOPRIL [Concomitant]
     Active Substance: LISINOPRIL
     Indication: Product used for unknown indication
     Dosage: UNK
  5. CALCIUM\CHOLECALCIFEROL [Concomitant]
     Active Substance: CALCIUM\CHOLECALCIFEROL
     Indication: Product used for unknown indication
     Dosage: UNK (20 TABLET)
  6. HYDROCHLOROTHIAZIDE [Concomitant]
     Active Substance: HYDROCHLOROTHIAZIDE
     Indication: Product used for unknown indication
     Dosage: 25 MG
  7. LYNPARZA [Concomitant]
     Active Substance: OLAPARIB
     Indication: Product used for unknown indication
     Dosage: UNK
     Dates: start: 20240504, end: 20240513
  8. POTASSIUM CHLORIDE [Concomitant]
     Active Substance: POTASSIUM CHLORIDE
     Indication: Product used for unknown indication
     Dosage: UNK

REACTIONS (4)
  - Toxicity to various agents [Unknown]
  - Nausea [Recovering/Resolving]
  - Renal disorder [Unknown]
  - Diarrhoea [Recovering/Resolving]
